FAERS Safety Report 6924321-3 (Version None)
Quarter: 2010Q3

REPORT INFORMATION
  Report Type: 
  Country: None (occurrence: None)
  Receive Date: 20100811
  Receipt Date: 20100811
  Transmission Date: 20110219
  Serious: Yes (Other)
  Sender: FDA-Public Use
  Company Number: None

PATIENT
  Age: 42 Year
  Sex: Male
  Weight: 120.6568 kg

DRUGS (1)
  1. ZYPREXA [Suspect]
     Indication: SCHIZOPHRENIA
     Dosage: 10MG AT BEDTIME PO
     Route: 048
     Dates: start: 20030808, end: 20100715

REACTIONS (1)
  - TEMPOROMANDIBULAR JOINT SYNDROME [None]
